FAERS Safety Report 9256827 (Version 6)
Quarter: 2013Q2

REPORT INFORMATION
  Report Type: Spontaneous
  Country: GB (occurrence: None)
  Receive Date: 20130423
  Receipt Date: 20130624
  Transmission Date: 20140414
  Serious: Yes (Other)
  Sender: FDA-Public Use
  Company Number: AUR-APL-2013-03205

PATIENT
  Age: 52 Year
  Sex: Female

DRUGS (4)
  1. METFORMIN (METFORMIN) [Suspect]
     Indication: PRODUCT USED FOR UNKNOWN INDICATION
  2. BYDUREON [Suspect]
     Indication: TYPE 2 DIABETES MELLITUS
     Dosage: (1 DOSAGE FORMS,1 IN 1 WK)
     Route: 058
     Dates: start: 20130306, end: 20130402
  3. LANTUS (INSULIN GLARGINE) [Suspect]
     Indication: PRODUCT USED FOR UNKNOWN INDICATION
  4. NOVORAPID [Suspect]
     Indication: PRODUCT USED FOR UNKNOWN INDICATION

REACTIONS (8)
  - Injection site pruritus [None]
  - Injection site erythema [None]
  - Abscess [None]
  - Blood glucose increased [None]
  - Neoplasm [None]
  - Injection site mass [None]
  - Injection site reaction [None]
  - Injection site inflammation [None]
